FAERS Safety Report 16355523 (Version 4)
Quarter: 2019Q2

REPORT INFORMATION
  Report Type: Spontaneous
  Country: IT (occurrence: IT)
  Receive Date: 20190525
  Receipt Date: 20190626
  Transmission Date: 20190711
  Serious: Yes (Hospitalization, Other)
  Sender: FDA-Public Use
  Company Number: PHHY2019IT116106

PATIENT
  Age: 9 Year
  Sex: Female
  Weight: 37 kg

DRUGS (21)
  1. ISONIAZID. [Suspect]
     Active Substance: ISONIAZID
     Indication: MENINGITIS TUBERCULOUS
  2. DEXAMETHASONE. [Suspect]
     Active Substance: DEXAMETHASONE
     Indication: MENINGITIS TUBERCULOUS
     Dosage: DOSAGE INCREASED
     Route: 042
  3. DEXAMETHASONE. [Suspect]
     Active Substance: DEXAMETHASONE
     Dosage: INCREASED DOSAGE
     Route: 042
  4. ENOXAPARIN [Concomitant]
     Active Substance: ENOXAPARIN
     Indication: CENTRAL NERVOUS SYSTEM VASCULITIS
  5. ETHAMBUTOL [Suspect]
     Active Substance: ETHAMBUTOL HYDROCHLORIDE
     Indication: MENINGITIS TUBERCULOUS
  6. DEXAMETHASONE. [Suspect]
     Active Substance: DEXAMETHASONE
     Indication: TUBERCULOSIS
     Dosage: 4 MG, Q8H
     Route: 042
  7. ACETYLSALICYLIC ACID [Concomitant]
     Active Substance: ASPIRIN
     Indication: CENTRAL NERVOUS SYSTEM VASCULITIS
     Dosage: 100 MG, UNK
     Route: 065
  8. ETHAMBUTOL [Suspect]
     Active Substance: ETHAMBUTOL HYDROCHLORIDE
     Indication: TUBERCULOSIS
     Dosage: 25 MG/KG, QD
     Route: 065
  9. ENOXAPARIN [Concomitant]
     Active Substance: ENOXAPARIN
     Dosage: 4000 IU, UNK
     Route: 065
  10. ENOXAPARIN [Concomitant]
     Active Substance: ENOXAPARIN
     Indication: PRODUCT USED FOR UNKNOWN INDICATION
  11. ENOXAPARIN [Concomitant]
     Active Substance: ENOXAPARIN
     Indication: TUBERCULOSIS
  12. ACETYLSALICYLIC ACID [Concomitant]
     Active Substance: ASPIRIN
     Dosage: UNK
     Route: 065
  13. ISONIAZID. [Suspect]
     Active Substance: ISONIAZID
     Indication: TUBERCULOSIS
     Dosage: 8 MG/KG, QD
     Route: 065
  14. RIFAMPICIN [Suspect]
     Active Substance: RIFAMPIN
     Indication: TUBERCULOSIS
     Dosage: 10 MG/KG, QD
     Route: 065
  15. PYRAZINAMIDE. [Suspect]
     Active Substance: PYRAZINAMIDE
     Indication: TUBERCULOSIS
     Dosage: 25 MG/KG, QD
     Route: 065
  16. BETAMETHASONE. [Suspect]
     Active Substance: BETAMETHASONE
     Indication: MENINGITIS TUBERCULOUS
     Dosage: 1 MG, QD
     Route: 065
  17. ACETYLSALICYLIC ACID [Concomitant]
     Active Substance: ASPIRIN
     Indication: TUBERCULOSIS
  18. DEXAMETHASONE. [Suspect]
     Active Substance: DEXAMETHASONE
     Route: 042
     Dates: start: 201510
  19. PREDNISONE. [Suspect]
     Active Substance: PREDNISONE
     Indication: MENINGITIS TUBERCULOUS
     Dosage: 12.5 MG, QD
     Route: 065
  20. RIFAMPICIN [Suspect]
     Active Substance: RIFAMPIN
     Indication: MENINGITIS TUBERCULOUS
  21. PYRAZINAMIDE. [Suspect]
     Active Substance: PYRAZINAMIDE
     Indication: MENINGITIS TUBERCULOUS

REACTIONS (8)
  - Osteopenia [Recovered/Resolved]
  - Toxicity to various agents [Recovered/Resolved]
  - Facial paralysis [Recovering/Resolving]
  - Paradoxical drug reaction [Recovering/Resolving]
  - Spinal fracture [Recovered/Resolved]
  - Weight increased [Recovered/Resolved]
  - Tuberculoma of central nervous system [Recovering/Resolving]
  - Hirsutism [Recovered/Resolved]

NARRATIVE: CASE EVENT DATE: 201603
